FAERS Safety Report 10208638 (Version 2)
Quarter: 2014Q2

REPORT INFORMATION
  Report Type: Spontaneous
  Country: US (occurrence: US)
  Receive Date: 20140530
  Receipt Date: 20140624
  Transmission Date: 20141212
  Serious: No
  Sender: FDA-Public Use
  Company Number: US-PFIZER INC-2014148933

PATIENT
  Age: 15 Year
  Sex: Male
  Weight: 82.09 kg

DRUGS (7)
  1. ZOLOFT [Suspect]
     Indication: GENERALISED ANXIETY DISORDER
     Dosage: 50 MG, DAILY
     Route: 048
     Dates: start: 20121015
  2. ZOLOFT [Interacting]
     Indication: OBSESSIVE-COMPULSIVE DISORDER
     Dosage: 100 MG, DAILY
     Route: 048
     Dates: start: 20121219, end: 201404
  3. CONCERTA [Interacting]
     Indication: ATTENTION DEFICIT/HYPERACTIVITY DISORDER
     Dosage: 27 MG, DAILY
     Dates: start: 20120829
  4. CONCERTA [Interacting]
     Dosage: 63 MG, DAILY
     Dates: start: 20120924
  5. CONCERTA [Interacting]
     Dosage: 90 MG, DAILY
     Dates: start: 20130821, end: 2014
  6. ZYRTEC [Concomitant]
     Dosage: 10 MG, DAILY
  7. MELATONIN [Concomitant]
     Dosage: 5 MG, DAILY

REACTIONS (3)
  - Drug interaction [Unknown]
  - Tachycardia [Unknown]
  - Electrocardiogram T wave abnormal [Unknown]
